FAERS Safety Report 12146155 (Version 1)
Quarter: 2016Q1

REPORT INFORMATION
  Report Type: Spontaneous
  Country: US (occurrence: US)
  Receive Date: 20160304
  Receipt Date: 20160304
  Transmission Date: 20160526
  Serious: No
  Sender: FDA-Public Use
  Company Number: US-MYLANLABS-2015M1039451

PATIENT
  Age: 84 Year
  Sex: Female
  Weight: 77.98 kg

DRUGS (3)
  1. LIDOCAINE PATCH [Suspect]
     Active Substance: LIDOCAINE
     Indication: OFF LABEL USE
  2. APAP [Concomitant]
     Active Substance: ACETAMINOPHEN
     Dosage: UNK
  3. LIDOCAINE PATCH [Suspect]
     Active Substance: LIDOCAINE
     Indication: BACK PAIN
     Dosage: 1 DF, QD, 12 HRS ON, 12 HRS OFF
     Route: 003
     Dates: start: 20151012, end: 201511

REACTIONS (4)
  - Product adhesion issue [Recovered/Resolved]
  - Off label use [Recovered/Resolved]
  - Product quality issue [Recovered/Resolved]
  - Drug ineffective for unapproved indication [Recovered/Resolved]

NARRATIVE: CASE EVENT DATE: 201510
